FAERS Safety Report 6779544-3 (Version None)
Quarter: 2010Q2

REPORT INFORMATION
  Report Type: 
  Country: None (occurrence: None)
  Receive Date: 20100618
  Receipt Date: 20100609
  Transmission Date: 20101027
  Serious: Yes (Other)
  Sender: FDA-Public Use
  Company Number: ES-AMGEN-QUU414319

PATIENT
  Sex: Female
  Weight: 100 kg

DRUGS (1)
  1. NPLATE [Suspect]
     Indication: IDIOPATHIC THROMBOCYTOPENIC PURPURA
     Route: 042
     Dates: start: 20100218

REACTIONS (4)
  - BLOOD SMEAR TEST ABNORMAL [None]
  - MOUTH HAEMORRHAGE [None]
  - MYELOFIBROSIS [None]
  - THROMBOCYTOPENIA [None]
